FAERS Safety Report 23344256 (Version 3)
Quarter: 2024Q1

REPORT INFORMATION
  Report Type: Spontaneous
  Country: US (occurrence: US)
  Receive Date: 20231228
  Receipt Date: 20240306
  Transmission Date: 20240410
  Serious: Yes (Other)
  Sender: FDA-Public Use
  Company Number: US-JNJFOC-20231253431

PATIENT
  Sex: Female

DRUGS (1)
  1. STELARA [Suspect]
     Active Substance: USTEKINUMAB
     Indication: Product used for unknown indication
     Route: 058

REACTIONS (6)
  - Crohn^s disease [Unknown]
  - Intestinal resection [Unknown]
  - Hypertension [Unknown]
  - Gait inability [Unknown]
  - Gastric infection [Unknown]
  - Product dose omission issue [Unknown]
